FAERS Safety Report 9357454 (Version 1)
Quarter: 2013Q2

REPORT INFORMATION
  Report Type: Report from Study
  Country: VE (occurrence: VE)
  Receive Date: 20130620
  Receipt Date: 20130620
  Transmission Date: 20140414
  Serious: Yes (Death, Other)
  Sender: FDA-Public Use
  Company Number: VE-ABBOTT-13P-178-1106350-00

PATIENT
  Age: 84 Year
  Sex: Male

DRUGS (1)
  1. HUMIRA [Suspect]
     Indication: PSORIATIC ARTHROPATHY
     Dates: start: 20120829, end: 201212

REACTIONS (2)
  - Respiratory arrest [Fatal]
  - Prostate cancer [Not Recovered/Not Resolved]
